FAERS Safety Report 8386708-4 (Version None)
Quarter: 2012Q2

REPORT INFORMATION
  Report Type: 
  Country: None (occurrence: None)
  Receive Date: 20120525
  Receipt Date: 20120517
  Transmission Date: 20120825
  Serious: Yes (Hospitalization)
  Sender: FDA-Public Use
  Company Number: US-VERTEX PHARMACEUTICALS INC.-AE-2012-003339

PATIENT
  Sex: Female

DRUGS (4)
  1. RIBAVIRIN [Concomitant]
     Indication: HEPATITIS C
     Route: 048
     Dates: start: 20120118, end: 20120226
  2. INCIVEK [Suspect]
     Indication: HEPATITIS C
     Route: 048
     Dates: start: 20120118, end: 20120412
  3. PEGASYS [Concomitant]
     Indication: HEPATITIS C
     Route: 058
     Dates: start: 20120118
  4. RIBAVIRIN [Concomitant]
     Route: 048
     Dates: start: 20120227

REACTIONS (10)
  - FATIGUE [None]
  - DYSPNOEA [None]
  - RASH [None]
  - DYSGEUSIA [None]
  - BLOOD THYROID STIMULATING HORMONE ABNORMAL [None]
  - GINGIVAL ULCERATION [None]
  - SKIN BURNING SENSATION [None]
  - NAUSEA [None]
  - HEART RATE INCREASED [None]
  - ANAEMIA [None]
